FAERS Safety Report 5577212-7 (Version None)
Quarter: 2007Q4

REPORT INFORMATION
  Report Type: 
  Country: None (occurrence: None)
  Receive Date: 20071228
  Receipt Date: 20071221
  Transmission Date: 20080405
  Serious: Yes (Other)
  Sender: FDA-Public Use
  Company Number: PHHO2007US20871

PATIENT
  Age: 6 Year
  Sex: Female

DRUGS (1)
  1. LIORESAL [Suspect]
     Indication: MUSCLE SPASTICITY
     Dosage: 0.1MCG DAILY
     Route: 037

REACTIONS (3)
  - ASTHENIA [None]
  - HYPOTONIA [None]
  - RASH [None]
